FAERS Safety Report 4340941-7 (Version None)
Quarter: 2004Q2

REPORT INFORMATION
  Report Type: 
  Country: None (occurrence: None)
  Receive Date: 20040413
  Receipt Date: 20040405
  Transmission Date: 20050107
  Serious: Yes (Hospitalization)
  Sender: FDA-Public Use
  Company Number: 2004-01458

PATIENT
  Age: 67 Year
  Sex: Female

DRUGS (4)
  1. HYDROXYCHLOROQUINE SULFATE) TABLET, 200MG [Suspect]
     Indication: RHEUMATOID ARTHRITIS
     Dosage: 200 MG, BID, ORAL
     Route: 048
  2. PREDNISOLONE [Concomitant]
  3. METHOTREXATE SODIUM [Concomitant]
  4. NABUMETONE [Concomitant]

REACTIONS (2)
  - DEVICE FAILURE [None]
  - PACING THRESHOLD INCREASED [None]
